FAERS Safety Report 5805069-5 (Version None)
Quarter: 2008Q3

REPORT INFORMATION
  Report Type: 
  Country: None (occurrence: None)
  Receive Date: 20080709
  Receipt Date: 20080704
  Transmission Date: 20090109
  Serious: Yes (Hospitalization)
  Sender: FDA-Public Use
  Company Number: FR-PFIZER INC-2008055616

PATIENT
  Age: 44 Year
  Sex: Male

DRUGS (3)
  1. SOLU-MEDROL [Suspect]
     Route: 042
     Dates: start: 20071012, end: 20080224
  2. ENDOXAN [Suspect]
     Route: 042
     Dates: start: 20071012, end: 20080224
  3. ZOPHREN [Suspect]
     Route: 042

REACTIONS (2)
  - ANGIOEDEMA [None]
  - PRURITUS [None]
